FAERS Safety Report 4815968-9 (Version None)
Quarter: 2005Q4

REPORT INFORMATION
  Report Type: 
  Country: None (occurrence: None)
  Receive Date: 20051031
  Receipt Date: 20050930
  Transmission Date: 20060501
  Serious: Yes (Life-Threatening)
  Sender: FDA-Public Use
  Company Number: GB-ROCHE-419790

PATIENT
  Age: 21 Year
  Sex: Female

DRUGS (4)
  1. ROACCUTANE [Suspect]
     Indication: ACNE
     Route: 048
     Dates: start: 20050415, end: 20050415
  2. OXYTETRACYCLINE [Concomitant]
     Indication: ACNE
     Route: 048
  3. MINOCYCLINE [Concomitant]
     Indication: ACNE
     Route: 048
  4. DIANETTE [Concomitant]
     Indication: ACNE
     Route: 048

REACTIONS (2)
  - THROAT IRRITATION [None]
  - WHEEZING [None]
